FAERS Safety Report 25093931 (Version 1)
Quarter: 2025Q1

REPORT INFORMATION
  Report Type: Spontaneous
  Country: US (occurrence: None)
  Receive Date: 20250318
  Receipt Date: 20250318
  Transmission Date: 20250409
  Serious: Yes (Other)
  Sender: FDA-CTU
  Company Number: None

PATIENT
  Age: 20 Year
  Sex: Female
  Weight: 69.3 kg

DRUGS (4)
  1. BIVIGAM [Suspect]
     Active Substance: HUMAN IMMUNOGLOBULIN G
     Indication: Polymyositis
     Route: 041
     Dates: start: 20250317
  2. Diphenhydramine 50mg PO [Concomitant]
     Dates: start: 20250317, end: 20250317
  3. Solu Medrol 125mg IV [Concomitant]
     Dates: start: 20250317, end: 20250317
  4. Normal Saline 250ml IV [Concomitant]
     Dates: start: 20250317, end: 20250317

REACTIONS (1)
  - Urticaria [None]

NARRATIVE: CASE EVENT DATE: 20250317
